FAERS Safety Report 4514211-8 (Version None)
Quarter: 2004Q3

REPORT INFORMATION
  Report Type: 
  Country: None (occurrence: None)
  Receive Date: 20040928
  Receipt Date: 20040714
  Transmission Date: 20050211
  Serious: No
  Sender: FDA-Public Use
  Company Number: 04P-163-0266985-00

PATIENT
  Age: 76 Year
  Sex: Female
  Weight: 61.2356 kg

DRUGS (7)
  1. HUMIRA [Suspect]
     Indication: RHEUMATOID ARTHRITIS
     Dosage: 40 MG, 1 IN 2 WK, SUBCUTANEOUS
     Route: 058
     Dates: start: 20030916, end: 20040301
  2. POTASSIUM [Concomitant]
  3. CELECOXIB [Concomitant]
  4. LEFLUNOMIDE [Concomitant]
  5. ESOMEPRAZOLE [Concomitant]
  6. ATENOLOL/CHLOROTHAL [Concomitant]
  7. PREDNISONE [Concomitant]

REACTIONS (3)
  - INJECTION SITE URTICARIA [None]
  - TRANSIENT ISCHAEMIC ATTACK [None]
  - VOMITING [None]
